FAERS Safety Report 4470894-2 (Version None)
Quarter: 2004Q4

REPORT INFORMATION
  Report Type: 
  Country: None (occurrence: None)
  Receive Date: 20041011
  Receipt Date: 20040720
  Transmission Date: 20050328
  Serious: Yes (Disabling)
  Sender: FDA-Public Use
  Company Number: DE-AMGEN-UK084109

PATIENT
  Sex: Female

DRUGS (2)
  1. ARANESP [Suspect]
     Indication: ANAEMIA OF MALIGNANT DISEASE
     Route: 065
     Dates: start: 20040401
  2. RED BLOOD CELLS [Concomitant]

REACTIONS (2)
  - DEAFNESS BILATERAL [None]
  - HAEMOGLOBIN DECREASED [None]
